FAERS Safety Report 6937489-X (Version None)
Quarter: 2010Q3

REPORT INFORMATION
  Report Type: 
  Country: None (occurrence: None)
  Receive Date: 20100823
  Receipt Date: 20100701
  Transmission Date: 20110219
  Serious: Yes (Other)
  Sender: FDA-Public Use
  Company Number: PHFR2010GB01962

PATIENT

DRUGS (1)
  1. CLOZAPINE [Suspect]
     Dosage: UNK
     Route: 048
     Dates: start: 20060301

REACTIONS (7)
  - ABSCESS [None]
  - DIARRHOEA [None]
  - LYMPHATIC DISORDER [None]
  - MALAISE [None]
  - PRURITUS [None]
  - RASH [None]
  - VOMITING [None]
